FAERS Safety Report 11411941 (Version 1)
Quarter: 2015Q3

REPORT INFORMATION
  Report Type: Spontaneous
  Country: US (occurrence: US)
  Receive Date: 20150821
  Receipt Date: 20150821
  Transmission Date: 20151125
  Serious: No
  Sender: FDA-Public Use
  Company Number: US-ELI_LILLY_AND_COMPANY-US201110001934

PATIENT
  Age: 82 Year
  Sex: Female

DRUGS (5)
  1. HUMULIN R [Suspect]
     Active Substance: INSULIN HUMAN
     Indication: TYPE 2 DIABETES MELLITUS
     Dosage: 16 U, EACH MORNING
  2. HUMULIN R [Suspect]
     Active Substance: INSULIN HUMAN
     Dosage: 14 U, EACH EVENING
  3. HUMULIN R [Suspect]
     Active Substance: INSULIN HUMAN
     Dosage: 16 U, EACH MORNING
  4. HUMULIN R [Suspect]
     Active Substance: INSULIN HUMAN
     Dosage: 14 U, EACH EVENING
  5. NOVOLIN N [Concomitant]
     Active Substance: INSULIN HUMAN
     Dosage: UNK

REACTIONS (3)
  - Pneumonia [Unknown]
  - Mental status changes [Unknown]
  - Blood glucose abnormal [Unknown]
